FAERS Safety Report 6087119-7 (Version None)
Quarter: 2009Q1

REPORT INFORMATION
  Report Type: 
  Country: None (occurrence: None)
  Receive Date: 20090223
  Receipt Date: 20090213
  Transmission Date: 20090719
  Serious: Yes (Hospitalization)
  Sender: FDA-Public Use
  Company Number: FR-WYE-H07958009

PATIENT
  Sex: Male
  Weight: 82 kg

DRUGS (5)
  1. TEMSIROLIMUS [Suspect]
     Indication: RENAL CELL CARCINOMA
     Route: 042
     Dates: start: 20081219, end: 20090113
  2. TEMSIROLIMUS [Suspect]
     Route: 042
     Dates: start: 20090127
  3. AMARYL [Concomitant]
     Indication: DIABETES MELLITUS
     Dosage: UNKNOWN
     Route: 065
     Dates: start: 20040101
  4. BEVACIZUMAB [Suspect]
     Indication: RENAL CELL CARCINOMA
     Route: 042
     Dates: start: 20081219, end: 20090113
  5. BEVACIZUMAB [Suspect]
     Route: 042
     Dates: start: 20090203

REACTIONS (3)
  - CONDITION AGGRAVATED [None]
  - DIABETES MELLITUS [None]
  - PROTEIN URINE PRESENT [None]
